FAERS Safety Report 8520475-6 (Version None)
Quarter: 2012Q3

REPORT INFORMATION
  Report Type: 
  Country: None (occurrence: None)
  Receive Date: 20120719
  Receipt Date: 20120709
  Transmission Date: 20120928
  Serious: Yes (Hospitalization)
  Sender: FDA-Public Use
  Company Number: IT-PFIZER INC-2012171966

PATIENT
  Age: 41 Year
  Sex: Female

DRUGS (1)
  1. PANTOPRAZOLE [Suspect]
     Indication: ABDOMINAL PAIN UPPER
     Dosage: 20 MG, 1X/DAY
     Route: 048
     Dates: start: 20120409, end: 20120409

REACTIONS (4)
  - ERYTHEMA [None]
  - PRURITUS [None]
  - BRONCHOSTENOSIS [None]
  - HYPOTENSION [None]
